FAERS Safety Report 12353794 (Version 1)
Quarter: 2016Q2

REPORT INFORMATION
  Report Type: Spontaneous
  Country: US (occurrence: US)
  Receive Date: 20160511
  Receipt Date: 20160511
  Transmission Date: 20160815
  Serious: Yes (Other)
  Sender: FDA-Public Use
  Company Number: US-ASTRAZENECA-2016SE48939

PATIENT
  Sex: Female
  Weight: 129.3 kg

DRUGS (23)
  1. VITAMIN D3 [Concomitant]
     Active Substance: CHOLECALCIFEROL
     Route: 065
  2. KETOTIFEN FUMARATE. [Concomitant]
     Active Substance: KETOTIFEN FUMARATE
     Route: 047
  3. VITAMIN B12 [Concomitant]
     Active Substance: CYANOCOBALAMIN
     Route: 065
  4. LAMICTAL [Concomitant]
     Active Substance: LAMOTRIGINE
     Route: 065
  5. CLONAZEPAM. [Concomitant]
     Active Substance: CLONAZEPAM
     Route: 065
  6. CEFALEXIN [Concomitant]
     Active Substance: CEPHALEXIN
     Indication: CYSTITIS
     Route: 065
  7. CALCIUM CITRATE [Concomitant]
     Active Substance: CALCIUM CITRATE
     Route: 065
  8. MAGNESIUM [Concomitant]
     Active Substance: MAGNESIUM
     Route: 065
  9. METAMUCIL [Concomitant]
     Active Substance: PLANTAGO SEED
     Dosage: 1, TWO TIMES A DAY
     Route: 065
  10. LEVOTHYROXINE. [Concomitant]
     Active Substance: LEVOTHYROXINE
     Route: 065
  11. LACTULOSE. [Concomitant]
     Active Substance: LACTULOSE
     Dosage: 2, AT NIGHT
     Route: 065
  12. WELLBUTRIN SR [Concomitant]
     Active Substance: BUPROPION HYDROCHLORIDE
     Route: 065
  13. NYSTATIN TRIAMINACILONE OINTMENT [Concomitant]
     Dosage: AS REQUIRED
     Route: 062
  14. VITAMINS NOS [Concomitant]
     Active Substance: VITAMINS
     Dosage: 1, DAILY
     Route: 065
  15. MOVANTIK [Suspect]
     Active Substance: NALOXEGOL OXALATE
     Indication: CONSTIPATION
     Route: 048
     Dates: start: 20160412, end: 20160418
  16. LEXAPRO [Concomitant]
     Active Substance: ESCITALOPRAM OXALATE
     Route: 065
  17. DICLOFENAC [Concomitant]
     Active Substance: DICLOFENAC
     Dosage: EVERY SIX HOURS
     Route: 062
  18. COUMADIN [Concomitant]
     Active Substance: WARFARIN SODIUM
     Dosage: DAILY
     Route: 065
  19. ARIPIPRAZOLE. [Concomitant]
     Active Substance: ARIPIPRAZOLE
     Route: 065
  20. PROVENTIL HFA [Concomitant]
     Active Substance: ALBUTEROL SULFATE
     Dosage: 2, AS REQUIRED
     Route: 055
  21. SINGULAIR [Concomitant]
     Active Substance: MONTELUKAST SODIUM
     Route: 065
  22. FLUTICASONE [Concomitant]
     Active Substance: FLUTICASONE\FLUTICASONE PROPIONATE
     Dosage: 2, TWO TIMES A DAY
     Route: 045
  23. GABAPENTIN. [Concomitant]
     Active Substance: GABAPENTIN

REACTIONS (2)
  - Depression [Unknown]
  - Suicidal ideation [Unknown]
